FAERS Safety Report 24377713 (Version 2)
Quarter: 2024Q4

REPORT INFORMATION
  Report Type: Report from Study
  Country: US (occurrence: US)
  Receive Date: 20240930
  Receipt Date: 20241001
  Transmission Date: 20250115
  Serious: No
  Sender: ROCHE
  Company Number: US-ROCHE-10000094430

PATIENT
  Age: 51 Year
  Sex: Female
  Weight: 73.02 kg

DRUGS (7)
  1. OCREVUS [Suspect]
     Active Substance: OCRELIZUMAB
     Indication: Progressive multiple sclerosis
     Route: 042
  2. OCREVUS [Suspect]
     Active Substance: OCRELIZUMAB
     Dosage: 300 MG SINGLE-USE VIAL
     Route: 065
     Dates: end: 20230826
  3. PROZAC [Concomitant]
     Active Substance: FLUOXETINE HYDROCHLORIDE
     Indication: Depression
     Route: 048
  4. PRAMIPEXOLE [Concomitant]
     Active Substance: PRAMIPEXOLE\PRAMIPEXOLE DIHYDROCHLORIDE
     Indication: Tremor
     Route: 048
  5. HYSINGLA ER [Concomitant]
     Active Substance: HYDROCODONE BITARTRATE
     Route: 048
  6. BACLOFEN [Concomitant]
     Active Substance: BACLOFEN
     Indication: Muscle spasms
     Dosage: EVERY 8 HOURS AS NEEDED
     Route: 048
  7. TIZANIDINE [Concomitant]
     Active Substance: TIZANIDINE
     Indication: Muscle spasms
     Dosage: AS NEEDED
     Route: 048

REACTIONS (5)
  - Tremor [Unknown]
  - Headache [Recovered/Resolved]
  - Upper respiratory tract infection [Recovered/Resolved]
  - COVID-19 [Unknown]
  - Gastrointestinal disorder [Unknown]

NARRATIVE: CASE EVENT DATE: 20240901
